FAERS Safety Report 5614091-3 (Version None)
Quarter: 2008Q1

REPORT INFORMATION
  Report Type: 
  Country: None (occurrence: None)
  Receive Date: 20080130
  Receipt Date: 20080128
  Transmission Date: 20080703
  Serious: No
  Sender: FDA-Public Use
  Company Number: Z002-204-0003

PATIENT
  Age: 60 Year
  Sex: Male

DRUGS (6)
  1. ZONEGRAN [Suspect]
     Indication: PARKINSON'S DISEASE
     Dosage: 25 MG, 1 IN 1 D, ORAL
     Route: 048
     Dates: start: 20040708, end: 20040814
  2. SINEMET [Concomitant]
  3. SELEGILINE HYDROCHLORIDE (SELEGILINE HYDROCHLORIDE) [Concomitant]
  4. CABERGOLINE [Concomitant]
  5. DOPS (DROXIDOPA) [Concomitant]
  6. DISOPYRAMIDE [Concomitant]

REACTIONS (4)
  - ASPHYXIA [None]
  - DISEASE PROGRESSION [None]
  - PARKINSON'S DISEASE [None]
  - PNEUMONIA ASPIRATION [None]
